FAERS Safety Report 9529075 (Version 1)
Quarter: 2013Q3

REPORT INFORMATION
  Report Type: Not Available
  Country: US (occurrence: US)
  Receive Date: 20130916
  Receipt Date: 20130916
  Transmission Date: 20140515
  Serious: No
  Sender: FDA-Public Use
  Company Number: US-LUNDBECK-DKLU1086937

PATIENT
  Sex: Male

DRUGS (4)
  1. ONFI [Suspect]
     Indication: EPILEPSY
     Route: 048
     Dates: start: 201204
  2. ONFI [Suspect]
     Indication: LENNOX-GASTAUT SYNDROME
     Dosage: DECREASED BY 5 MG EVERY 4 DAYS UNTIL WEANED OFF
     Route: 048
     Dates: end: 20121130
  3. ONFI [Suspect]
  4. ONFI [Suspect]

REACTIONS (5)
  - Coordination abnormal [Unknown]
  - Anger [Unknown]
  - Irritability [Unknown]
  - Aggression [Unknown]
  - Agitation [Unknown]
